FAERS Safety Report 11788580 (Version 1)
Quarter: 2015Q4

REPORT INFORMATION
  Report Type: Spontaneous
  Country: US (occurrence: None)
  Receive Date: 20151130
  Receipt Date: 20151130
  Transmission Date: 20160305
  Serious: Yes (Other)
  Sender: FDA-Public Use
  Company Number: None

PATIENT
  Age: 22 Year
  Sex: Female
  Weight: 50.35 kg

DRUGS (3)
  1. RESERVATROL (GRAPE SEED  EXTRACT ORIGIN) [Concomitant]
  2. MORPHINE SULFATE SR 30 MG VA MED CENTER WEST PALM BCH, FL. [Suspect]
     Active Substance: MORPHINE SULFATE
     Indication: PAIN
     Dosage: ONE PILL (YEARS)
     Route: 048
  3. TUMERIC (INDIAN SPICE) [Concomitant]

REACTIONS (2)
  - Product substitution issue [None]
  - Drug ineffective [None]

NARRATIVE: CASE EVENT DATE: 20151125
